FAERS Safety Report 8807374 (Version 1)
Quarter: 2012Q4

REPORT INFORMATION
  Report Type: 
  Country: UA (occurrence: UA)
  Receive Date: 20120925
  Receipt Date: 20120925
  Transmission Date: 20130627
  Serious: Yes (Hospitalization)
  Sender: FDA-Public Use
  Company Number: UA-B.I. PHARMACEUTICALS,INC./RIDGEFIELD-2012-AP-00786AP

PATIENT
  Age: 27 Year
  Sex: Male

DRUGS (1)
  1. MOVALIS [Suspect]
     Indication: INFLAMMATION
     Dosage: 15 mg
     Route: 030
     Dates: start: 20120919, end: 20120919

REACTIONS (4)
  - Erythema [Unknown]
  - Lip disorder [Recovered/Resolved]
  - Blister [Unknown]
  - Secretion discharge [Recovered/Resolved]
